FAERS Safety Report 6424489-1 (Version None)
Quarter: 2009Q4

REPORT INFORMATION
  Report Type: 
  Country: None (occurrence: None)
  Receive Date: 20091103
  Receipt Date: 20091021
  Transmission Date: 20100525
  Serious: Yes (Other)
  Sender: FDA-Public Use
  Company Number: US-ROCHE-661547

PATIENT
  Sex: Female

DRUGS (2)
  1. PEGASYS [Suspect]
     Indication: HEPATITIS C
     Dosage: FORM: PFS
     Route: 065
     Dates: start: 20090714
  2. RIBAVIRIN [Suspect]
     Indication: HEPATITIS C
     Route: 065
     Dates: start: 20090714

REACTIONS (5)
  - ALANINE AMINOTRANSFERASE INCREASED [None]
  - CATARACT [None]
  - DRUG DOSE OMISSION [None]
  - HEPATIC PAIN [None]
  - RETINAL INJURY [None]
